FAERS Safety Report 20491523 (Version 1)
Quarter: 2022Q1

REPORT INFORMATION
  Report Type: Spontaneous
  Country: None (occurrence: GB)
  Receive Date: 20220218
  Receipt Date: 20220218
  Transmission Date: 20220423
  Serious: Yes (Death, Life-Threatening, Hospitalization, Disabling, Other)
  Sender: FDA-Public Use
  Company Number: GB-B.Braun Medical Inc.-2126019

PATIENT
  Age: 76 Year
  Weight: 69 kg

DRUGS (23)
  1. CEFUROXIME SODIUM [Suspect]
     Active Substance: CEFUROXIME SODIUM
  2. TACROLIMUS [Suspect]
     Active Substance: TACROLIMUS
  3. ALFACALCIDOL [Suspect]
     Active Substance: ALFACALCIDOL
  4. ALLOPURINOL [Concomitant]
     Active Substance: ALLOPURINOL
  5. BETAHISTINE [Concomitant]
     Active Substance: BETAHISTINE
  6. BISOPROLOL. [Suspect]
     Active Substance: BISOPROLOL FUMARATE
  7. CHOLECALCIFEROL [Suspect]
     Active Substance: CHOLECALCIFEROL
  8. ENVARSUS XR [Concomitant]
     Active Substance: TACROLIMUS
  9. EPLERENONE [Concomitant]
     Active Substance: EPLERENONE
  10. FUROSEMIDE [Concomitant]
     Active Substance: FUROSEMIDE
  11. GLICLAZIDE [Concomitant]
     Active Substance: GLICLAZIDE
  12. GLUCAGON [Concomitant]
     Active Substance: GLUCAGON
  13. NITROGLYCERIN [Suspect]
     Active Substance: NITROGLYCERIN
  14. HYDROCORTISONE [Suspect]
     Active Substance: HYDROCORTISONE
  15. NITROGLYCERIN [Concomitant]
     Active Substance: NITROGLYCERIN
  16. OMEPRAZOLE [Suspect]
     Active Substance: OMEPRAZOLE
  17. PREDNISOLONE [Concomitant]
     Active Substance: PREDNISOLONE
  18. ALBUTEROL [Concomitant]
     Active Substance: ALBUTEROL
  19. SENNA [Concomitant]
     Active Substance: SENNA LEAF\SENNOSIDES\SENNOSIDES A AND B
  20. SENNOSIDES A AND B [Suspect]
     Active Substance: SENNOSIDES A AND B
  21. DEXTROSE [Suspect]
     Active Substance: DEXTROSE
  22. DOXYCYCLINE [Suspect]
     Active Substance: DOXYCYCLINE
  23. NITROGLYCERIN [Suspect]
     Active Substance: NITROGLYCERIN

REACTIONS (33)
  - Immunosuppressant drug level increased [Fatal]
  - Pyrexia [Fatal]
  - Haemoptysis [Fatal]
  - Drug level increased [Fatal]
  - Lower respiratory tract infection [Fatal]
  - Myocardial ischaemia [Fatal]
  - Dyspnoea [Fatal]
  - Multimorbidity [Fatal]
  - Malaise [Fatal]
  - Ascites [Fatal]
  - Renal impairment [Fatal]
  - Pleural effusion [Fatal]
  - Cardiomegaly [Fatal]
  - Transplant failure [Fatal]
  - Toxicity to various agents [Fatal]
  - Cough [Fatal]
  - Swelling [Fatal]
  - Oesophageal perforation [Fatal]
  - Hypoglycaemia [Fatal]
  - Pneumonia [Fatal]
  - Dysphagia [Fatal]
  - Superinfection [Fatal]
  - Rash [Fatal]
  - Acute kidney injury [Fatal]
  - Rales [Fatal]
  - Oesophageal carcinoma [Fatal]
  - Soft tissue mass [Fatal]
  - Inflammatory marker increased [Fatal]
  - Lung consolidation [Fatal]
  - Productive cough [Fatal]
  - Sepsis [Fatal]
  - Cardiac failure congestive [Fatal]
  - Drug interaction [Fatal]
